FAERS Safety Report 8408381-9 (Version None)
Quarter: 2012Q2

REPORT INFORMATION
  Report Type: 
  Country: None (occurrence: None)
  Receive Date: 20120604
  Receipt Date: 20120523
  Transmission Date: 20120825
  Serious: Yes (Other)
  Sender: FDA-Public Use
  Company Number: GB-BRISTOL-MYERS SQUIBB COMPANY-16625147

PATIENT

DRUGS (2)
  1. ATAZANAVIR [Suspect]
     Dosage: CURRENT ATAZANAVIR TROUGH LEVEL WAS APPROXIMATELY 800NG/ML
  2. RITONAVIR [Suspect]

REACTIONS (2)
  - LIVER DISORDER [None]
  - HEPATITIS C [None]
